FAERS Safety Report 13736068 (Version 1)
Quarter: 2017Q3

REPORT INFORMATION
  Report Type: Spontaneous
  Country: JP (occurrence: JP)
  Receive Date: 20170710
  Receipt Date: 20170710
  Transmission Date: 20171127
  Serious: Yes (Hospitalization)
  Sender: FDA-Public Use
  Company Number: JP-SUNOVION-2017SUN002975

PATIENT
  Age: 0 Day
  Sex: Female
  Weight: 4.42 kg

DRUGS (1)
  1. LUNESTA [Suspect]
     Active Substance: ESZOPICLONE
     Dosage: UNK UNK, QD
     Route: 064

REACTIONS (1)
  - Transient tachypnoea of the newborn [Recovered/Resolved]

NARRATIVE: CASE EVENT DATE: 20170329
